FAERS Safety Report 8479147-9 (Version None)
Quarter: 2012Q2

REPORT INFORMATION
  Report Type: 
  Country: None (occurrence: None)
  Receive Date: 20120402
  Receipt Date: 20110714
  Transmission Date: 20120825
  Serious: Yes (Life-Threatening, Hospitalization)
  Sender: FDA-Public Use
  Company Number: 2011ST000236

PATIENT
  Age: 4 Year
  Sex: Male
  Weight: 17 kg

DRUGS (4)
  1. RANITIDINE [Concomitant]
  2. CO-TRIMAZOLE [Concomitant]
  3. ONCASPAR [Suspect]
     Indication: ACUTE LYMPHOCYTIC LEUKAEMIA
     Dosage: 1800 IU;X1;IV
     Route: 042
     Dates: end: 20110714
  4. DEXAMETHASONE [Concomitant]

REACTIONS (5)
  - COUGH [None]
  - DYSPNOEA [None]
  - RESPIRATORY DISTRESS [None]
  - URTICARIA [None]
  - HYPERSENSITIVITY [None]
